FAERS Safety Report 16285101 (Version 2)
Quarter: 2019Q2

REPORT INFORMATION
  Report Type: Spontaneous
  Country: US (occurrence: US)
  Receive Date: 20190508
  Receipt Date: 20190511
  Transmission Date: 20190711
  Serious: Yes (Hospitalization)
  Sender: FDA-Public Use
  Company Number: US-CELGENEUS-USA-20190501508

PATIENT
  Age: 41 Year
  Sex: Female

DRUGS (11)
  1. ALPRAZOLAM. [Concomitant]
     Active Substance: ALPRAZOLAM
     Route: 065
  2. TRIAZOLAM. [Concomitant]
     Active Substance: TRIAZOLAM
     Route: 065
  3. OTEZLA [Suspect]
     Active Substance: APREMILAST
     Indication: PSORIASIS
     Route: 048
     Dates: start: 20190418
  4. BETAMETH DIP [Concomitant]
     Route: 065
  5. SERTRALINE [Concomitant]
     Active Substance: SERTRALINE HYDROCHLORIDE
     Route: 065
  6. TRAZODONE [Concomitant]
     Active Substance: TRAZODONE HYDROCHLORIDE
     Route: 065
  7. MONTELUKAST [Concomitant]
     Active Substance: MONTELUKAST SODIUM
     Route: 065
  8. NAPROXEN. [Concomitant]
     Active Substance: NAPROXEN
     Route: 065
  9. ORPHENADRINE [Concomitant]
     Active Substance: ORPHENADRINE
     Route: 065
  10. CYANOCOBALAMIN. [Concomitant]
     Active Substance: CYANOCOBALAMIN
     Route: 065
  11. METOPROLOL. [Concomitant]
     Active Substance: METOPROLOL
     Route: 065

REACTIONS (1)
  - Migraine [Unknown]

NARRATIVE: CASE EVENT DATE: 20190427
